FAERS Safety Report 5121731-4 (Version None)
Quarter: 2006Q4

REPORT INFORMATION
  Report Type: 
  Country: None (occurrence: None)
  Receive Date: 20061006
  Receipt Date: 20060518
  Transmission Date: 20070319
  Serious: Yes (Hospitalization)
  Sender: FDA-Public Use
  Company Number: DE-ROCHE-448487

PATIENT
  Age: 55 Year
  Sex: Female

DRUGS (43)
  1. DACLIZUMAB [Suspect]
     Route: 042
     Dates: start: 20050513, end: 20050513
  2. DACLIZUMAB [Suspect]
     Route: 042
     Dates: start: 20050520, end: 20050520
  3. MYCOPHENOLATE MOFETIL [Suspect]
     Route: 042
     Dates: start: 20050513, end: 20050518
  4. MYCOPHENOLATE MOFETIL [Suspect]
     Route: 048
     Dates: end: 20051109
  5. MYCOPHENOLATE MOFETIL [Suspect]
     Dosage: ADVERSE EVENT/TOXICITY
     Route: 048
     Dates: start: 20051110, end: 20060507
  6. MYCOPHENOLATE MOFETIL [Suspect]
     Dosage: ADVERSE EVENT/TOXICITY
     Route: 048
     Dates: start: 20060508
  7. TACROLIMUS [Suspect]
     Route: 048
     Dates: start: 20050518, end: 20050520
  8. TACROLIMUS [Suspect]
     Dosage: ADJUSTED TO REACH PREDEFINED TARGET LEVELS.
     Route: 048
     Dates: start: 20050521, end: 20050521
  9. TACROLIMUS [Suspect]
     Dosage: 2.5 MG ONCE; 4 MG ONCE. ADJUSTED TO REACH PREDEFINED TARGET LEVELS.
     Route: 048
     Dates: start: 20050522, end: 20050522
  10. TACROLIMUS [Suspect]
     Dosage: DOSE CHANGED DUE TO TREATMENT OF REJECTION.
     Route: 048
     Dates: start: 20050523, end: 20050530
  11. TACROLIMUS [Suspect]
     Dosage: ADJUSTED TO REACH PREDEFINED TARGET LEVELS.
     Route: 048
     Dates: start: 20050531, end: 20050531
  12. TACROLIMUS [Suspect]
     Dosage: ADJUSTED TO REACH PREDEFINED TARGET LEVELS
     Route: 048
     Dates: start: 20050601, end: 20051110
  13. TACROLIMUS [Suspect]
     Dosage: ADVERSE EVENT/TOXICITY
     Route: 048
     Dates: start: 20051111, end: 20060123
  14. TACROLIMUS [Suspect]
     Dosage: ADJUSTED TO REACH PREDEFINED TARGET LEVELS.
     Route: 048
     Dates: start: 20060124
  15. HYDROCORTISONE [Suspect]
     Route: 065
     Dates: start: 20050514, end: 20050516
  16. PREDNISONE TAB [Suspect]
     Dosage: TAPERED ACCORDING TO LOCAL PROTOCOL.
     Route: 065
     Dates: start: 20050517, end: 20050522
  17. PREDNISONE TAB [Suspect]
     Dosage: TAPERED ACCORDING TO LOCAL PROTOCOL
     Route: 065
     Dates: start: 20050531
  18. CORTICOSTEROID NOS [Suspect]
     Dosage: DRUG NAME REPORTED AS 'SDH'. DOSAGE CHANGE DUE TO TREATMENT OF REJECTION.
     Route: 065
     Dates: start: 20050523, end: 20050525
  19. CORTICOSTEROID NOS [Suspect]
     Dosage: TAPERED ACCORDING TO LOCAL PROTOCOL.
     Route: 065
     Dates: start: 20050526, end: 20050530
  20. MESALAZINE [Concomitant]
     Dates: start: 20050513
  21. AMPICILLIN-NATRIUM [Concomitant]
     Dates: start: 20050513, end: 20050513
  22. ACETYLCYSTEINE [Concomitant]
     Dates: start: 20050514, end: 20050518
  23. METAMIZOL [Concomitant]
     Dates: start: 20050515
  24. FUROSEMIDE [Concomitant]
     Dates: start: 20050513, end: 20050515
  25. THIAMINCHLORID-HCL [Concomitant]
     Dates: start: 20050514
  26. METOCLOPRAMID-HCL [Concomitant]
     Dates: start: 20050515, end: 20050515
  27. 1 CONCOMITANT DRUG [Concomitant]
     Dosage: DRUG NAME REPORTED AS SDD
     Dates: start: 20050514, end: 20050517
  28. URSODEOXYCHOLIC ACID [Concomitant]
     Dosage: DRUG NAME REPORTED AS URSODEOXYCHLORSAURE
     Dates: start: 20050513
  29. 1 CONCOMITANT DRUG [Concomitant]
     Dosage: DRUG NAME REPORTED AS GELATINEPOLYSUCCINAT
     Dates: start: 20050513, end: 20050513
  30. METOPROLOL SUCCINATE [Concomitant]
     Dates: start: 20050627
  31. PIRITRAMID [Concomitant]
     Dates: start: 20050513, end: 20050518
  32. PANTOPRAZOL [Concomitant]
     Dates: start: 20050517, end: 20050616
  33. ERYTHROMYCINSTEARAT [Concomitant]
     Dates: start: 20050517, end: 20050517
  34. PROPRANOLOL HYDROCHLORIDE [Concomitant]
     Dates: start: 20050518, end: 20050627
  35. AMLODIPINE BESYLATE [Concomitant]
     Dates: start: 20050517
  36. TRAMADOL HCL [Concomitant]
     Dates: start: 20050520
  37. TPN ELECTROLYTES IN PLASTIC CONTAINER [Concomitant]
     Dates: start: 20050514, end: 20050518
  38. LEVOTHYROXIN-NATRIUM [Concomitant]
     Dates: start: 20050517
  39. HALOPERIDOL [Concomitant]
     Dates: start: 20050521, end: 20050526
  40. KALIUMCITRAT [Concomitant]
     Dates: start: 20050526, end: 20050530
  41. TRIMETHOPRIM + SULFAMETHOXAZOLE [Concomitant]
     Dosage: TRIMETHOPRIM 160 MG, SULFAMETHOXAZOL.
     Dates: start: 20050527, end: 20050531
  42. ESOMEPRAZOLE MAGNESIUM [Concomitant]
     Dosage: ESOMEPRAZOL-NATRIUM
     Dates: start: 20050616
  43. CALCIUM CARBONATE/COLECALCIFEROL [Concomitant]
     Dates: start: 20050627

REACTIONS (1)
  - GASTROENTERITIS [None]
